FAERS Safety Report 16584780 (Version 1)
Quarter: 2019Q3

REPORT INFORMATION
  Report Type: Spontaneous
  Country: US (occurrence: US)
  Receive Date: 20190717
  Receipt Date: 20190717
  Transmission Date: 20191004
  Serious: No
  Sender: FDA-Public Use
  Company Number: US-TEVA-2019-US-1080633

PATIENT
  Sex: Female

DRUGS (1)
  1. AJOVY [Suspect]
     Active Substance: FREMANEZUMAB-VFRM
     Indication: MIGRAINE
     Dosage: QUARTERLY DOSE

REACTIONS (6)
  - Arthralgia [Unknown]
  - Formication [Unknown]
  - Heart rate irregular [Unknown]
  - Constipation [Unknown]
  - Pruritus generalised [Unknown]
  - Palpitations [Unknown]
